FAERS Safety Report 10903976 (Version 4)
Quarter: 2015Q3

REPORT INFORMATION
  Report Type: Spontaneous
  Country: US (occurrence: US)
  Receive Date: 20150311
  Receipt Date: 20150805
  Transmission Date: 20151125
  Serious: Yes (Death, Hospitalization)
  Sender: FDA-Public Use
  Company Number: US-ASTELLAS-2015US007149

PATIENT
  Age: 86 Year
  Sex: Male

DRUGS (8)
  1. XTANDI [Suspect]
     Active Substance: ENZALUTAMIDE
     Indication: PROSTATE CANCER
     Dosage: 160 MG, ONCE DAILY BY MOUTH
     Route: 048
     Dates: start: 20150206
  2. FIRMAGON [Concomitant]
     Active Substance: DEGARELIX ACETATE
     Indication: PROSTATIC SPECIFIC ANTIGEN INCREASED
     Dosage: UNK UNK, UNKNOWN FREQ.
     Route: 065
  3. RAPAFLO [Concomitant]
     Active Substance: SILODOSIN
     Indication: LOWER URINARY TRACT SYMPTOMS
     Dosage: UNK UNK, UNKNOWN FREQ.
     Route: 065
  4. LASIX [Concomitant]
     Active Substance: FUROSEMIDE
     Indication: PRODUCT USED FOR UNKNOWN INDICATION
     Dosage: UNK UNK, UNKNOWN FREQ.
     Route: 065
  5. XTANDI [Suspect]
     Active Substance: ENZALUTAMIDE
     Indication: BONE CANCER METASTATIC
  6. AMOXICILLAIN [Concomitant]
     Indication: PRODUCT USED FOR UNKNOWN INDICATION
     Dosage: UNK UNK, UNKNOWN FREQ.
     Route: 065
  7. TOPROL XL [Concomitant]
     Active Substance: METOPROLOL SUCCINATE
     Indication: PRODUCT USED FOR UNKNOWN INDICATION
     Dosage: UNK UNK, UNKNOWN FREQ.
     Route: 065
  8. METRONIDAZOLE. [Concomitant]
     Active Substance: METRONIDAZOLE
     Indication: PRODUCT USED FOR UNKNOWN INDICATION
     Dosage: UNK UNK, UNKNOWN FREQ.
     Route: 065

REACTIONS (3)
  - Drug dose omission [Unknown]
  - Gallbladder disorder [Recovering/Resolving]
  - Death [Fatal]

NARRATIVE: CASE EVENT DATE: 20150708
